FAERS Safety Report 4447999-5 (Version None)
Quarter: 2004Q3

REPORT INFORMATION
  Report Type: 
  Country: None (occurrence: None)
  Receive Date: 20040913
  Receipt Date: 20040802
  Transmission Date: 20050211
  Serious: Yes (Other)
  Sender: FDA-Public Use
  Company Number: US-MERCK-0408USA00155

PATIENT
  Age: 79 Year
  Sex: Male
  Weight: 97 kg

DRUGS (17)
  1. COMBIVENT [Concomitant]
     Indication: DYSPNOEA
     Route: 055
  2. ALLOPURINOL [Concomitant]
     Route: 048
  3. ASPIRIN [Concomitant]
     Route: 048
  4. CYANOCOBALAMIN [Concomitant]
     Route: 030
  5. LANOXIN [Concomitant]
     Route: 048
  6. FOLIC ACID [Concomitant]
     Route: 048
  7. LASIX [Concomitant]
     Route: 048
  8. GEMFIBROZIL [Concomitant]
     Route: 048
     Dates: end: 20040701
  9. LEVOXYL [Concomitant]
     Route: 048
  10. LINSEED OIL [Concomitant]
     Route: 048
  11. LISINOPRIL [Concomitant]
     Route: 048
  12. TOPROL-XL [Concomitant]
     Route: 048
  13. NITROQUICK [Concomitant]
     Indication: CHEST PAIN
     Route: 060
  14. OMEGA-3 MARINE TRIGLYCERIDES [Concomitant]
     Route: 048
  15. ZOCOR [Suspect]
     Indication: MIXED HYPERLIPIDAEMIA
     Route: 048
     Dates: end: 20040706
  16. ZOCOR [Suspect]
     Route: 048
     Dates: start: 20040707, end: 20040701
  17. WARFARIN [Concomitant]
     Route: 048

REACTIONS (3)
  - LIVER FUNCTION TEST ABNORMAL [None]
  - PROTHROMBIN TIME PROLONGED [None]
  - RHABDOMYOLYSIS [None]
